APPROVED DRUG PRODUCT: GALANTAMINE HYDROBROMIDE
Active Ingredient: GALANTAMINE HYDROBROMIDE
Strength: EQ 4MG BASE
Dosage Form/Route: TABLET;ORAL
Application: A090957 | Product #001 | TE Code: AB
Applicant: AUROBINDO PHARMA LIMITED
Approved: Mar 29, 2011 | RLD: No | RS: No | Type: RX